FAERS Safety Report 10025502 (Version 1)
Quarter: 2014Q1

REPORT INFORMATION
  Report Type: Spontaneous
  Country: IT (occurrence: IT)
  Receive Date: 20140320
  Receipt Date: 20140320
  Transmission Date: 20141002
  Serious: Yes (Hospitalization)
  Sender: FDA-Public Use
  Company Number: IT-TEVA-469877ISR

PATIENT
  Age: 74 Year
  Sex: Female

DRUGS (3)
  1. CARBOPLATINO TEVA [Suspect]
     Indication: OVARIAN CANCER
     Dosage: 160 MILLIGRAM DAILY;
     Route: 042
     Dates: start: 20140311, end: 20140311
  2. CARDICOR 1.25 [Concomitant]
     Indication: HYPERTENSION
  3. NATRILIX 1.5 [Concomitant]
     Indication: HYPERTENSION

REACTIONS (1)
  - Atrial fibrillation [Recovering/Resolving]
